FAERS Safety Report 5557072-0 (Version None)
Quarter: 2007Q4

REPORT INFORMATION
  Report Type: 
  Country: None (occurrence: None)
  Receive Date: 20071214
  Receipt Date: 20071205
  Transmission Date: 20080405
  Serious: Yes (Death, Other)
  Sender: FDA-Public Use
  Company Number: GB-JNJFOC-20060705248

PATIENT
  Sex: Female
  Weight: 48 kg

DRUGS (5)
  1. REMICADE [Suspect]
     Indication: RHEUMATOID ARTHRITIS
     Route: 042
  2. METHOTREXATE [Concomitant]
     Route: 065
  3. ADCAL D3 [Concomitant]
     Route: 065
  4. ALENDRONATE SODIUM [Concomitant]
     Route: 065
  5. FOLIC ACID [Concomitant]
     Route: 065

REACTIONS (2)
  - LUNG NEOPLASM MALIGNANT [None]
  - NEOPLASM MALIGNANT [None]
